FAERS Safety Report 20480126 (Version 1)
Quarter: 2022Q1

REPORT INFORMATION
  Report Type: Spontaneous
  Country: US (occurrence: None)
  Receive Date: 20220215
  Receipt Date: 20220215
  Transmission Date: 20220423
  Serious: Yes (unspecified)
  Sender: FDA-Public Use
  Company Number: None

PATIENT
  Age: 71 Year
  Sex: Female
  Weight: 96.0 kg

DRUGS (4)
  1. INJECTAFER [Suspect]
     Active Substance: FERRIC CARBOXYMALTOSE
     Indication: Neoplasm malignant
     Dosage: FREQUENCY : ONCE;?
     Route: 041
     Dates: start: 20220201, end: 20220201
  2. INJECTAFER [Suspect]
     Active Substance: FERRIC CARBOXYMALTOSE
     Indication: Anaemia
  3. DIPHENHYDRAMINE [Concomitant]
     Dates: start: 20220201, end: 20220201
  4. HYDROCORTISONE [Concomitant]
     Active Substance: HYDROCORTISONE
     Dates: start: 20220201, end: 20220201

REACTIONS (3)
  - Infusion related reaction [None]
  - Pruritus [None]
  - Paraesthesia [None]

NARRATIVE: CASE EVENT DATE: 20220201
